FAERS Safety Report 10208596 (Version 1)
Quarter: 2014Q2

REPORT INFORMATION
  Report Type: Spontaneous
  Country: CH (occurrence: CH)
  Receive Date: 20140527
  Receipt Date: 20140527
  Transmission Date: 20141212
  Serious: Yes (Other)
  Sender: FDA-Public Use
  Company Number: CH-ACTELION-A-CH2014-98965

PATIENT
  Age: 8 Year
  Sex: Female

DRUGS (1)
  1. ZAVESCA [Suspect]
     Indication: NIEMANN-PICK DISEASE
     Dosage: 200 MG, BID
     Route: 048

REACTIONS (2)
  - Memory impairment [Recovered/Resolved]
  - Disorientation [Recovered/Resolved]
